FAERS Safety Report 18480079 (Version 1)
Quarter: 2020Q4

REPORT INFORMATION
  Report Type: Other
  Country: CA (occurrence: CA)
  Receive Date: 20201109
  Receipt Date: 20201109
  Transmission Date: 20210114
  Serious: Yes (Other)
  Sender: FDA-Public Use
  Company Number: CA-APOTEX-2020AP021010

PATIENT
  Sex: Female

DRUGS (30)
  1. EXEMESTANE. [Suspect]
     Active Substance: EXEMESTANE
     Indication: HUMAN EPIDERMAL GROWTH FACTOR RECEPTOR NEGATIVE
     Dosage: UNK
     Route: 065
  2. TAMOXIFEN [Suspect]
     Active Substance: TAMOXIFEN
     Indication: HORMONE RECEPTOR POSITIVE BREAST CANCER
  3. ABRAXANE [Suspect]
     Active Substance: PACLITAXEL
     Indication: BREAST CANCER METASTATIC
  4. EXEMESTANE. [Suspect]
     Active Substance: EXEMESTANE
     Indication: HORMONE RECEPTOR POSITIVE BREAST CANCER
  5. LETROZOLE. [Suspect]
     Active Substance: LETROZOLE
     Indication: BREAST CANCER METASTATIC
  6. FLUOROURACIL. [Suspect]
     Active Substance: FLUOROURACIL
     Indication: HORMONE RECEPTOR POSITIVE BREAST CANCER
  7. FULVESTRANT. [Suspect]
     Active Substance: FULVESTRANT
     Indication: HUMAN EPIDERMAL GROWTH FACTOR RECEPTOR NEGATIVE
     Dosage: UNK
     Route: 065
  8. FULVESTRANT. [Suspect]
     Active Substance: FULVESTRANT
     Indication: HORMONE RECEPTOR POSITIVE BREAST CANCER
  9. TAMOXIFEN [Suspect]
     Active Substance: TAMOXIFEN
     Indication: HUMAN EPIDERMAL GROWTH FACTOR RECEPTOR NEGATIVE
     Dosage: UNK
     Route: 065
  10. XELODA [Suspect]
     Active Substance: CAPECITABINE
     Indication: HORMONE RECEPTOR POSITIVE BREAST CANCER
  11. PROCYTOX [Suspect]
     Active Substance: CYCLOPHOSPHAMIDE
     Indication: HUMAN EPIDERMAL GROWTH FACTOR RECEPTOR NEGATIVE
     Dosage: UNK
     Route: 065
  12. TAXOL [Suspect]
     Active Substance: PACLITAXEL
     Indication: HUMAN EPIDERMAL GROWTH FACTOR RECEPTOR NEGATIVE
     Dosage: UNK
     Route: 030
  13. TAXOL [Suspect]
     Active Substance: PACLITAXEL
     Indication: HORMONE RECEPTOR POSITIVE BREAST CANCER
  14. XELODA [Suspect]
     Active Substance: CAPECITABINE
     Indication: BREAST CANCER METASTATIC
  15. EXEMESTANE. [Suspect]
     Active Substance: EXEMESTANE
     Indication: BREAST CANCER METASTATIC
  16. LETROZOLE. [Suspect]
     Active Substance: LETROZOLE
     Indication: HUMAN EPIDERMAL GROWTH FACTOR RECEPTOR NEGATIVE
     Dosage: UNK
     Route: 065
  17. TAXOL [Suspect]
     Active Substance: PACLITAXEL
     Indication: BREAST CANCER METASTATIC
  18. EPIRUBICIN [Suspect]
     Active Substance: EPIRUBICIN
     Indication: HUMAN EPIDERMAL GROWTH FACTOR RECEPTOR NEGATIVE
     Dosage: UNK
     Route: 065
  19. PROCYTOX [Suspect]
     Active Substance: CYCLOPHOSPHAMIDE
     Indication: HORMONE RECEPTOR POSITIVE BREAST CANCER
     Dosage: 2000 MILLIGRAM
     Route: 041
  20. FULVESTRANT. [Suspect]
     Active Substance: FULVESTRANT
     Indication: BREAST CANCER METASTATIC
  21. LETROZOLE. [Suspect]
     Active Substance: LETROZOLE
     Indication: HORMONE RECEPTOR POSITIVE BREAST CANCER
  22. ABRAXANE [Suspect]
     Active Substance: PACLITAXEL
     Indication: HORMONE RECEPTOR POSITIVE BREAST CANCER
  23. FLUOROURACIL. [Suspect]
     Active Substance: FLUOROURACIL
     Indication: HUMAN EPIDERMAL GROWTH FACTOR RECEPTOR NEGATIVE
     Dosage: UNK
     Route: 065
  24. FLUOROURACIL. [Suspect]
     Active Substance: FLUOROURACIL
     Indication: BREAST CANCER METASTATIC
  25. PROCYTOX [Suspect]
     Active Substance: CYCLOPHOSPHAMIDE
     Indication: BREAST CANCER METASTATIC
  26. TAMOXIFEN [Suspect]
     Active Substance: TAMOXIFEN
     Indication: BREAST CANCER METASTATIC
  27. XELODA [Suspect]
     Active Substance: CAPECITABINE
     Indication: HUMAN EPIDERMAL GROWTH FACTOR RECEPTOR NEGATIVE
     Dosage: UNK
     Route: 048
  28. ABRAXANE [Suspect]
     Active Substance: PACLITAXEL
     Indication: HUMAN EPIDERMAL GROWTH FACTOR RECEPTOR NEGATIVE
     Dosage: UNK
     Route: 065
  29. EPIRUBICIN [Suspect]
     Active Substance: EPIRUBICIN
     Indication: BREAST CANCER METASTATIC
  30. EPIRUBICIN [Suspect]
     Active Substance: EPIRUBICIN
     Indication: HORMONE RECEPTOR POSITIVE BREAST CANCER
     Dosage: UNK
     Route: 041

REACTIONS (2)
  - Hormone receptor positive breast cancer [Unknown]
  - Metastasis [Unknown]
